FAERS Safety Report 12391680 (Version 1)
Quarter: 2016Q2

REPORT INFORMATION
  Report Type: Report from Study
  Country: BR (occurrence: BR)
  Receive Date: 20160522
  Receipt Date: 20160522
  Transmission Date: 20160815
  Serious: Yes (Other)
  Sender: FDA-Public Use
  Company Number: PHHY2016BR069181

PATIENT
  Age: 48 Year
  Sex: Female
  Weight: 49 kg

DRUGS (1)
  1. GILENYA [Suspect]
     Active Substance: FINGOLIMOD HYDROCHLORIDE
     Indication: PRODUCT USED FOR UNKNOWN INDICATION
     Dosage: UNK, QD
     Route: 048
     Dates: start: 20130901, end: 201604

REACTIONS (16)
  - Dysgraphia [Unknown]
  - Anger [Unknown]
  - Brain neoplasm [Unknown]
  - Concomitant disease aggravated [Unknown]
  - Thinking abnormal [Unknown]
  - Speech disorder [Unknown]
  - Chest pain [Unknown]
  - Depression [Unknown]
  - Cognitive disorder [Unknown]
  - Fatigue [Unknown]
  - Headache [Recovered/Resolved]
  - Mood swings [Unknown]
  - Nervousness [Unknown]
  - Bipolar disorder [Unknown]
  - Anxiety [Unknown]
  - Pain [Recovered/Resolved]

NARRATIVE: CASE EVENT DATE: 201409
